FAERS Safety Report 20109857 (Version 1)
Quarter: 2021Q4

REPORT INFORMATION
  Report Type: Spontaneous
  Country: US (occurrence: None)
  Receive Date: 20211124
  Receipt Date: 20211124
  Transmission Date: 20220303
  Serious: Yes (Hospitalization)
  Sender: FDA-Public Use
  Company Number: None

PATIENT
  Age: 57 Year
  Sex: Female
  Weight: 78.47 kg

DRUGS (1)
  1. GADAVIST [Suspect]
     Active Substance: GADOBUTROL
     Route: 042

REACTIONS (4)
  - Urticaria [None]
  - Pruritus [None]
  - Rash [None]
  - Dry mouth [None]

NARRATIVE: CASE EVENT DATE: 20211124
